FAERS Safety Report 12294136 (Version 1)
Quarter: 2016Q2

REPORT INFORMATION
  Report Type: Spontaneous
  Country: FR (occurrence: FR)
  Receive Date: 20160422
  Receipt Date: 20160422
  Transmission Date: 20160815
  Serious: No
  Sender: FDA-Public Use
  Company Number: FR-009507513-1604FRA004110

PATIENT
  Sex: Male

DRUGS (1)
  1. DIPROLENE [Suspect]
     Active Substance: BETAMETHASONE DIPROPIONATE
     Indication: PEMPHIGUS
     Dosage: UNK
     Route: 048

REACTIONS (5)
  - Incorrect route of drug administration [Unknown]
  - Mouth ulceration [Unknown]
  - Oral disorder [Unknown]
  - Drug prescribing error [Unknown]
  - Off label use [Unknown]
